FAERS Safety Report 4971364-5 (Version None)
Quarter: 2006Q2

REPORT INFORMATION
  Report Type: 
  Country: None (occurrence: None)
  Receive Date: 20060413
  Receipt Date: 20060330
  Transmission Date: 20061013
  Serious: Yes (Life-Threatening, Hospitalization)
  Sender: FDA-Public Use
  Company Number: GB-BRISTOL-MYERS SQUIBB COMPANY-13331392

PATIENT
  Age: 20 Year
  Sex: Male
  Weight: 63 kg

DRUGS (7)
  1. MESNA [Suspect]
     Indication: BONE SARCOMA
     Route: 042
     Dates: start: 20060216, end: 20060220
  2. ETOPOSIDE [Suspect]
     Indication: BONE SARCOMA
     Route: 042
     Dates: start: 20060216, end: 20060220
  3. IFOSFAMIDE [Suspect]
     Indication: BONE SARCOMA
     Route: 042
     Dates: start: 20060216, end: 20060220
  4. NEULASTA [Concomitant]
     Indication: NEUTROPENIA
     Route: 058
     Dates: start: 20060221, end: 20060221
  5. WARFARIN SODIUM [Concomitant]
     Route: 048
  6. TRAMADOL [Concomitant]
     Indication: PAIN
     Route: 048
     Dates: start: 20060215
  7. DOMPERIDONE [Concomitant]
     Indication: MALAISE
     Route: 048
     Dates: start: 20060215

REACTIONS (4)
  - CLOSTRIDIUM COLITIS [None]
  - NEUTROPENIC SEPSIS [None]
  - ORAL CANDIDIASIS [None]
  - PANCYTOPENIA [None]
